FAERS Safety Report 14346610 (Version 2)
Quarter: 2018Q1

REPORT INFORMATION
  Report Type: Spontaneous
  Country: JP (occurrence: JP)
  Receive Date: 20180103
  Receipt Date: 20180201
  Transmission Date: 20180509
  Serious: Yes (Death)
  Sender: FDA-Public Use
  Company Number: JP-PFIZER INC-2017554932

PATIENT
  Age: 55 Year
  Sex: Female

DRUGS (3)
  1. CARBOPLATIN. [Suspect]
     Active Substance: CARBOPLATIN
     Indication: OVARIAN CANCER
     Dosage: 540 MG, DAILY (GIVEN OVER 60 MINUTES)
     Route: 041
     Dates: start: 20171227, end: 20171227
  2. WARFARIN [Suspect]
     Active Substance: WARFARIN
     Indication: INTERNATIONAL NORMALISED RATIO INCREASED
     Dosage: 3.5 MG, DAILY
  3. PACLITAXEL 30MG/5ML HOSPIRA [Suspect]
     Active Substance: PACLITAXEL
     Indication: OVARIAN CANCER
     Dosage: 280 MG, DAILY (GIVEN OVER 180 MINUTES)
     Route: 041
     Dates: start: 20171227, end: 20171227

REACTIONS (4)
  - Haemorrhage [Fatal]
  - Hypopnoea [Unknown]
  - Heart rate decreased [Unknown]
  - Nausea [Unknown]

NARRATIVE: CASE EVENT DATE: 20171227
